FAERS Safety Report 13238390 (Version 1)
Quarter: 2017Q1

REPORT INFORMATION
  Report Type: Spontaneous
  Country: US (occurrence: US)
  Receive Date: 20170216
  Receipt Date: 20170216
  Transmission Date: 20170428
  Serious: Yes (Other)
  Sender: FDA-Public Use
  Company Number: US-ROCHE-1892607

PATIENT
  Sex: Female
  Weight: 90.35 kg

DRUGS (4)
  1. AVASTIN [Suspect]
     Active Substance: BEVACIZUMAB
     Indication: NEOVASCULAR AGE-RELATED MACULAR DEGENERATION
     Dosage: ONCE
     Route: 050
     Dates: start: 20161026, end: 20161026
  2. LISINOPRIL. [Concomitant]
     Active Substance: LISINOPRIL
  3. SYNTHROID [Concomitant]
     Active Substance: LEVOTHYROXINE SODIUM
  4. EYLEA [Suspect]
     Active Substance: AFLIBERCEPT
     Indication: NEOVASCULAR AGE-RELATED MACULAR DEGENERATION
     Route: 031
     Dates: start: 20161226

REACTIONS (10)
  - Fatigue [Not Recovered/Not Resolved]
  - Paraesthesia [Unknown]
  - Hypoaesthesia [Unknown]
  - Visual acuity reduced [Not Recovered/Not Resolved]
  - Ocular hyperaemia [Recovered/Resolved]
  - Memory impairment [Not Recovered/Not Resolved]
  - Migraine [Unknown]
  - Asthenopia [Unknown]
  - Insomnia [Not Recovered/Not Resolved]
  - Eye pain [Not Recovered/Not Resolved]

NARRATIVE: CASE EVENT DATE: 20161222
